FAERS Safety Report 13047770 (Version 1)
Quarter: 2016Q4

REPORT INFORMATION
  Report Type: Spontaneous
  Country: US (occurrence: US)
  Receive Date: 20161220
  Receipt Date: 20161220
  Transmission Date: 20170207
  Serious: No
  Sender: FDA-Public Use
  Company Number: US-ALLERGAN-1668563US

PATIENT
  Sex: Female
  Weight: 52.63 kg

DRUGS (1)
  1. LILETTA [Suspect]
     Active Substance: LEVONORGESTREL
     Indication: CONTRACEPTION
     Dosage: 52 MG
     Dates: start: 20160729, end: 20160829

REACTIONS (2)
  - Device expulsion [Unknown]
  - Dyspareunia [Recovered/Resolved]
